FAERS Safety Report 6963137-9 (Version None)
Quarter: 2010Q3

REPORT INFORMATION
  Report Type: 
  Country: None (occurrence: None)
  Receive Date: 20100831
  Receipt Date: 20100819
  Transmission Date: 20110219
  Serious: Yes (Hospitalization, Disabling)
  Sender: FDA-Public Use
  Company Number: 2009SP020441

PATIENT
  Age: 43 Year
  Sex: Female
  Weight: 79.3795 kg

DRUGS (7)
  1. NUVARING [Suspect]
     Indication: MENSTRUAL DISORDER
     Dates: start: 20061001, end: 20061201
  2. ADVIL LIQUI-GELS [Concomitant]
  3. NORVASC [Concomitant]
  4. FLONASE [Concomitant]
  5. DIAZEPAM [Concomitant]
  6. DIAZEPAM [Concomitant]
  7. CELEBREX [Concomitant]

REACTIONS (22)
  - ANXIETY [None]
  - ATELECTASIS [None]
  - ATRIAL FIBRILLATION [None]
  - BLOOD GLUCOSE INCREASED [None]
  - CITROBACTER TEST POSITIVE [None]
  - DEEP VEIN THROMBOSIS [None]
  - DERMAL CYST [None]
  - HEADACHE [None]
  - HEART RATE INCREASED [None]
  - HEART RATE IRREGULAR [None]
  - HYPERTENSION [None]
  - INTERNATIONAL NORMALISED RATIO DECREASED [None]
  - MELANOCYTIC NAEVUS [None]
  - PAIN [None]
  - PNEUMONIA [None]
  - PROTHROMBIN TIME PROLONGED [None]
  - PULMONARY EMBOLISM [None]
  - PULMONARY HYPERTENSION [None]
  - PULMONARY INFARCTION [None]
  - RHINITIS ALLERGIC [None]
  - THERAPEUTIC RESPONSE DECREASED [None]
  - URINARY TRACT INFECTION [None]
